FAERS Safety Report 12818972 (Version 3)
Quarter: 2016Q4

REPORT INFORMATION
  Report Type: Spontaneous
  Country: US (occurrence: US)
  Receive Date: 20161006
  Receipt Date: 20161128
  Transmission Date: 20170207
  Serious: Yes (Death, Hospitalization)
  Sender: FDA-Public Use
  Company Number: US-SA-2016SA183272

PATIENT
  Age: 57 Year
  Sex: Male
  Weight: 110.3 kg

DRUGS (19)
  1. VITAMIN D3 [Concomitant]
     Active Substance: CHOLECALCIFEROL
  2. KLONOPIN [Concomitant]
     Active Substance: CLONAZEPAM
     Route: 048
  3. LASIX [Concomitant]
     Active Substance: FUROSEMIDE
  4. PROMETHAZINE [Concomitant]
     Active Substance: PROMETHAZINE\PROMETHAZINE HYDROCHLORIDE
     Indication: NAUSEA
     Dosage: EVERY 4-6 HOURS AS NEEDED
  5. PROVIGIL [Concomitant]
     Active Substance: MODAFINIL
  6. WARFARIN [Concomitant]
     Active Substance: WARFARIN
  7. AUBAGIO [Suspect]
     Active Substance: TERIFLUNOMIDE
     Indication: RELAPSING-REMITTING MULTIPLE SCLEROSIS
     Route: 065
     Dates: start: 20160420, end: 20160909
  8. DEMEROL [Concomitant]
     Active Substance: MEPERIDINE HYDROCHLORIDE
     Dosage: AS NEEDED
  9. VIMPAT [Concomitant]
     Active Substance: LACOSAMIDE
     Route: 048
  10. TRIHEXYPHENIDYL [Concomitant]
     Active Substance: TRIHEXYPHENIDYL
  11. VITAMIN D [Concomitant]
     Active Substance: CHOLECALCIFEROL
     Route: 048
  12. AMIODARONE [Concomitant]
     Active Substance: AMIODARONE
  13. KEPPRA [Concomitant]
     Active Substance: LEVETIRACETAM
     Route: 048
  14. ALBUTEROL. [Concomitant]
     Active Substance: ALBUTEROL
  15. KLOR-CON [Concomitant]
     Active Substance: POTASSIUM CHLORIDE
     Route: 048
  16. LYRICA [Concomitant]
     Active Substance: PREGABALIN
  17. RESTORIL [Concomitant]
     Active Substance: TEMAZEPAM
     Dosage: 1-2
     Route: 048
  18. SYNTHROID [Concomitant]
     Active Substance: LEVOTHYROXINE SODIUM
  19. LOVENOX [Concomitant]
     Active Substance: ENOXAPARIN SODIUM

REACTIONS (8)
  - Loss of consciousness [Fatal]
  - Sepsis [Fatal]
  - Cerebral haemorrhage [Fatal]
  - Critical illness [Fatal]
  - Cerebrovascular accident [Fatal]
  - Fall [Unknown]
  - Subdural haematoma [Fatal]
  - Cellulitis [Fatal]

NARRATIVE: CASE EVENT DATE: 2016
